FAERS Safety Report 8682786 (Version 2)
Quarter: 2012Q4

REPORT INFORMATION
  Report Type: Report from Study
  Country: US (occurrence: US)
  Receive Date: 20120725
  Receipt Date: 20120918
  Transmission Date: 20130627
  Serious: Yes (Other)
  Sender: FDA-Public Use
  Company Number: US-JNJFOC-20120703824

PATIENT
  Age: 74 None
  Sex: Female
  Weight: 65.77 kg

DRUGS (6)
  1. USTEKINUMAB [Suspect]
     Indication: PSORIASIS
     Route: 058
     Dates: start: 201011, end: 20110920
  2. ENBREL [Suspect]
     Indication: PSORIATIC ARTHROPATHY
     Route: 058
     Dates: start: 20111004, end: 20111020
  3. ENBREL [Suspect]
     Indication: PSORIASIS
     Route: 058
     Dates: start: 20111004, end: 20111020
  4. CYCLOSPORIN [Concomitant]
     Indication: PSORIASIS
     Route: 065
     Dates: start: 20101123, end: 20110811
  5. CORTICOSTEROIDS NOS [Concomitant]
     Route: 065
  6. ULTRAVATE [Concomitant]
     Indication: PSORIASIS
     Dates: start: 20110617

REACTIONS (3)
  - Diverticulitis [Recovered/Resolved]
  - Drug ineffective [Unknown]
  - Pruritus [Recovered/Resolved]
